FAERS Safety Report 7080312-6 (Version None)
Quarter: 2010Q4

REPORT INFORMATION
  Report Type: 
  Country: None (occurrence: None)
  Receive Date: 20101025
  Receipt Date: 20101011
  Transmission Date: 20110411
  Serious: Yes (Other)
  Sender: FDA-Public Use
  Company Number: AE-1089

PATIENT
  Sex: Female
  Weight: 63.5036 kg

DRUGS (6)
  1. LEVETIRACETAM [Suspect]
     Indication: PARTIAL SEIZURES
     Dosage: 2 TABLETS, BID, ORAL
     Route: 048
     Dates: start: 20100914, end: 20101002
  2. LAMOTRIGINE [Concomitant]
  3. SERTRALINE HYDROCHLORIDE [Concomitant]
  4. AMBIEN [Concomitant]
  5. LORAZEPAM [Concomitant]
  6. DEPO-PROVERA [Concomitant]

REACTIONS (2)
  - CONVULSION [None]
  - PRODUCT SUBSTITUTION ISSUE [None]
